FAERS Safety Report 8568466-3 (Version None)
Quarter: 2012Q3

REPORT INFORMATION
  Report Type: 
  Country: None (occurrence: None)
  Receive Date: 20120803
  Receipt Date: 20120206
  Transmission Date: 20120928
  Serious: No
  Sender: FDA-Public Use
  Company Number: US-ABBOTT-12P-163-0901957-00

PATIENT
  Sex: Male

DRUGS (3)
  1. NIASPAN [Suspect]
     Dates: start: 20101101, end: 20110601
  2. TRILIPIX [Concomitant]
     Indication: PRODUCT USED FOR UNKNOWN INDICATION
  3. NIASPAN [Suspect]
     Indication: BLOOD CHOLESTEROL ABNORMAL
     Dates: start: 20110601

REACTIONS (1)
  - PAIN IN EXTREMITY [None]
